FAERS Safety Report 5530300-3 (Version None)
Quarter: 2007Q4

REPORT INFORMATION
  Report Type: 
  Country: None (occurrence: None)
  Receive Date: 20071127
  Receipt Date: 20071127
  Transmission Date: 20080405
  Serious: Yes (Life-Threatening, Hospitalization)
  Sender: FDA-Public Use
  Company Number: None

PATIENT
  Age: 87 Year
  Sex: Female
  Weight: 73 kg

DRUGS (2)
  1. LISINOPRIL [Suspect]
     Dosage: 20.0 MILLIGRAM(S);2;1
     Dates: start: 20071108, end: 20071111
  2. LISINOPRIL [Suspect]
     Dosage: 20.0 MILLIGRAMS TWICE DAILY
     Dates: start: 20071108, end: 20071111

REACTIONS (2)
  - ANGIOEDEMA [None]
  - SWELLING FACE [None]
